FAERS Safety Report 4901433-7 (Version None)
Quarter: 2006Q1

REPORT INFORMATION
  Report Type: 
  Country: None (occurrence: None)
  Receive Date: 20060202
  Receipt Date: 20060126
  Transmission Date: 20060701
  Serious: Yes (Other)
  Sender: FDA-Public Use
  Company Number: US-2006-001558

PATIENT
  Age: 52 Year
  Sex: Female
  Weight: 99.8 kg

DRUGS (13)
  1. MAGNEVIST [Suspect]
     Indication: NUCLEAR MAGNETIC RESONANCE IMAGING
     Dosage: 20 ML, 1 DOSE, INTRAVENOUS
     Route: 042
     Dates: start: 20060110, end: 20060110
  2. LIPITOR [Concomitant]
  3. PERCOCET [Concomitant]
  4. ASPIRIN [Concomitant]
  5. ACTIQ [Concomitant]
  6. NITROQUICK [Concomitant]
  7. LANTUS [Concomitant]
  8. XANAX [Concomitant]
  9. GLUCOPHAGE [Concomitant]
  10. METHADONE HCL [Concomitant]
  11. SPIRONOLACTONE [Concomitant]
  12. LISINOPRIL [Concomitant]
  13. HUMALIN (INSULIN) [Concomitant]

REACTIONS (5)
  - DYSPHAGIA [None]
  - PRURITUS [None]
  - THROAT IRRITATION [None]
  - THROAT TIGHTNESS [None]
  - URTICARIA [None]
